FAERS Safety Report 7823538-3 (Version None)
Quarter: 2011Q4

REPORT INFORMATION
  Report Type: 
  Country: None (occurrence: None)
  Receive Date: 20111019
  Receipt Date: 20111014
  Transmission Date: 20120403
  Serious: Yes (Death)
  Sender: FDA-Public Use
  Company Number: FR-PFIZER INC-2011245616

PATIENT
  Age: 82 Year
  Sex: Male

DRUGS (1)
  1. EFFEXOR XR [Suspect]
     Indication: DEPRESSION
     Dosage: ^NORMAL DAILY DOSE^ (NOT SPECIFIED)

REACTIONS (2)
  - CARDIAC FAILURE [None]
  - DEATH [None]
